FAERS Safety Report 6535587-6 (Version None)
Quarter: 2010Q1

REPORT INFORMATION
  Report Type: 
  Country: None (occurrence: None)
  Receive Date: 20100113
  Receipt Date: 20091230
  Transmission Date: 20100710
  Serious: Yes (Other)
  Sender: FDA-Public Use
  Company Number: PHEH2009US18531

PATIENT
  Age: 83 Year
  Sex: Female

DRUGS (1)
  1. DIOVAN [Suspect]
     Dosage: UNK, UNK

REACTIONS (4)
  - FEELING ABNORMAL [None]
  - MUSCULOSKELETAL STIFFNESS [None]
  - PAIN IN EXTREMITY [None]
  - STENT PLACEMENT [None]
